FAERS Safety Report 9508506 (Version 1)
Quarter: 2013Q3

REPORT INFORMATION
  Report Type: Spontaneous
  Country: US (occurrence: US)
  Receive Date: 20130909
  Receipt Date: 20130909
  Transmission Date: 20140515
  Serious: Yes (Other)
  Sender: FDA-Public Use
  Company Number: US-PFIZER INC-2013257835

PATIENT
  Age: 57 Year
  Sex: Male
  Weight: 90.7 kg

DRUGS (5)
  1. TIKOSYN [Suspect]
     Indication: ATRIAL FIBRILLATION
     Dosage: 500 UG, 2X/DAY
     Route: 048
     Dates: start: 2009
  2. TIKOSYN [Suspect]
     Dosage: 500 UG, 2X/DAY
     Route: 048
     Dates: start: 201111, end: 2012
  3. TIKOSYN [Suspect]
     Dosage: 500 UG, 2X/DAY
     Route: 048
     Dates: start: 2012, end: 201207
  4. NEXIUM [Concomitant]
     Indication: BARRETT^S OESOPHAGUS
     Dosage: UNK
  5. CARDIZEM [Concomitant]
     Indication: CARDIAC DISORDER
     Dosage: 120 MG, 1X/DAY

REACTIONS (1)
  - Atrial fibrillation [Unknown]
